FAERS Safety Report 20896308 (Version 3)
Quarter: 2022Q2

REPORT INFORMATION
  Report Type: Report from Study
  Country: US (occurrence: US)
  Receive Date: 20220531
  Receipt Date: 20220606
  Transmission Date: 20220721
  Serious: Yes (Hospitalization, Disabling, Other)
  Sender: FDA-Public Use
  Company Number: US-AMGEN-USACT2021091973

PATIENT
  Age: 77 Year
  Sex: Female
  Weight: 74.9 kg

DRUGS (11)
  1. AMG-510 [Suspect]
     Active Substance: AMG-510
     Indication: Non-small cell lung cancer stage IV
     Dosage: 960 MILLIGRAM
     Route: 048
     Dates: start: 20210611
  2. AMG-510 [Suspect]
     Active Substance: AMG-510
     Indication: K-ras gene mutation
  3. PANITUMUMAB [Suspect]
     Active Substance: PANITUMUMAB
     Indication: K-ras gene mutation
     Dosage: 430 MILLIGRAM
     Route: 042
     Dates: start: 20210611
  4. PANITUMUMAB [Suspect]
     Active Substance: PANITUMUMAB
     Indication: Non-small cell lung cancer stage IV
  5. DUREZOL [Concomitant]
     Active Substance: DIFLUPREDNATE
     Dosage: 1 GTT DROPS
     Route: 047
     Dates: start: 20200701
  6. APRESOLINE HYDROCHLORIDE [Concomitant]
     Active Substance: HYDRALAZINE HYDROCHLORIDE
     Dosage: 25 MILLIGRAM
     Route: 048
     Dates: start: 20190501
  7. CLEOCIN T [Concomitant]
     Active Substance: CLINDAMYCIN PHOSPHATE
     Dosage: 1 UNK
     Route: 061
     Dates: start: 20210610
  8. IMODIUM [Concomitant]
     Active Substance: LOPERAMIDE HYDROCHLORIDE
     Dosage: 2 MILLIGRAM
     Route: 048
     Dates: start: 20210610
  9. LOPRESSOR [Concomitant]
     Active Substance: METOPROLOL TARTRATE
     Dosage: 50 MILLIGRAM
     Route: 048
     Dates: start: 20190501
  10. ZOFRAN [Concomitant]
     Active Substance: ONDANSETRON HYDROCHLORIDE
     Dosage: 8 MILLIGRAM
     Route: 048
     Dates: start: 20210610
  11. ILEVRO [Concomitant]
     Active Substance: NEPAFENAC
     Dosage: 1 GTT DROPS
     Route: 047
     Dates: start: 20200701

REACTIONS (1)
  - Back pain [Not Recovered/Not Resolved]

NARRATIVE: CASE EVENT DATE: 20210612
